FAERS Safety Report 23735564 (Version 1)
Quarter: 2024Q2

REPORT INFORMATION
  Report Type: Report from Study
  Country: RU (occurrence: None)
  Receive Date: 20240412
  Receipt Date: 20240412
  Transmission Date: 20240716
  Serious: Yes (Death, Hospitalization)
  Sender: FDA-Public Use
  Company Number: 2021A202144

PATIENT
  Sex: Male
  Weight: 63 kg

DRUGS (1)
  1. BRILINTA [Suspect]
     Active Substance: TICAGRELOR
     Dosage: UNKNOWN DOSE, 2 TIMES A DAY
     Route: 048
     Dates: start: 20210226

REACTIONS (1)
  - Pneumonia [Fatal]
